FAERS Safety Report 17109259 (Version 2)
Quarter: 2019Q4

REPORT INFORMATION
  Report Type: Spontaneous
  Country: US (occurrence: US)
  Receive Date: 20191204
  Receipt Date: 20191209
  Transmission Date: 20200122
  Serious: Yes (Other)
  Sender: FDA-Public Use
  Company Number: US-ABBVIE-19K-163-3165173-00

PATIENT
  Sex: Male

DRUGS (4)
  1. IMBRUVICA [Suspect]
     Active Substance: IBRUTINIB
     Dosage: 140 MG, UNK
     Route: 048
     Dates: start: 20191029, end: 20191101
  2. IMBRUVICA [Suspect]
     Active Substance: IBRUTINIB
     Indication: PRODUCT USED FOR UNKNOWN INDICATION
     Dosage: 140 MG, UNK
     Route: 048
     Dates: start: 20140815, end: 201611
  3. IMBRUVICA [Suspect]
     Active Substance: IBRUTINIB
     Dosage: 140 MG, UNK
     Route: 048
     Dates: start: 201708
  4. IMBRUVICA [Suspect]
     Active Substance: IBRUTINIB
     Dosage: 140 MG, UNK
     Route: 048
     Dates: start: 2016, end: 201706

REACTIONS (6)
  - Pneumonia [Unknown]
  - Tremor [Unknown]
  - Cholelithiasis [Unknown]
  - Skin mass [Recovered/Resolved]
  - Pyrexia [Not Recovered/Not Resolved]
  - Withdrawal syndrome [Unknown]
